FAERS Safety Report 7460219-2 (Version None)
Quarter: 2011Q2

REPORT INFORMATION
  Report Type: 
  Country: None (occurrence: None)
  Receive Date: 20110505
  Receipt Date: 20110428
  Transmission Date: 20111010
  Serious: Yes (Other)
  Sender: FDA-Public Use
  Company Number: US-ROCHE-774608

PATIENT
  Sex: Female

DRUGS (2)
  1. HERCEPTIN [Suspect]
     Dosage: 6 CYCLES ALONG WITH DOCETAXEL AND CARBOPLATIN
     Route: 065
  2. HERCEPTIN [Suspect]
     Dosage: 2 CYCLES
     Route: 065

REACTIONS (1)
  - DERMATOMYOSITIS [None]
